FAERS Safety Report 8608713-2 (Version None)
Quarter: 2012Q3

REPORT INFORMATION
  Report Type: 
  Country: None (occurrence: None)
  Receive Date: 20120821
  Receipt Date: 20120813
  Transmission Date: 20120928
  Serious: Yes (Hospitalization)
  Sender: FDA-Public Use
  Company Number: GB-BAUSCH-BL-2012-000443

PATIENT

DRUGS (3)
  1. DEXAMETHASONE TAB [Suspect]
     Route: 048
  2. DEXAMETHASONE TAB [Suspect]
     Indication: MENINGITIS PNEUMOCOCCAL
     Dosage: 10 MILLIGRAMS EVERY 6 HOURS
     Route: 048
  3. DEXAMETHASONE TAB [Suspect]
     Dosage: 4 MILLIGRAMS EVERY 6 HOURS
     Route: 048

REACTIONS (1)
  - CEREBRAL ISCHAEMIA [None]
